FAERS Safety Report 8248285-8 (Version None)
Quarter: 2012Q1

REPORT INFORMATION
  Report Type: 
  Country: None (occurrence: None)
  Receive Date: 20120330
  Receipt Date: 20120322
  Transmission Date: 20120608
  Serious: Yes (Other)
  Sender: FDA-Public Use
  Company Number: US-FRI-1000029298

PATIENT
  Sex: Male
  Weight: 84 kg

DRUGS (4)
  1. LEXAPRO [Suspect]
     Indication: DEPRESSION
  2. WELLBUTRIN [Suspect]
     Indication: DEPRESSION
  3. TRAMADOL HCL [Suspect]
     Indication: PAIN
  4. CYMBALTA [Suspect]
     Indication: DEPRESSION

REACTIONS (3)
  - PAIN [None]
  - MUSCULOSKELETAL STIFFNESS [None]
  - MUSCLE SPASTICITY [None]
